FAERS Safety Report 7829420-X (Version None)
Quarter: 2011Q4

REPORT INFORMATION
  Report Type: 
  Country: None (occurrence: None)
  Receive Date: 20111020
  Receipt Date: 20111006
  Transmission Date: 20120403
  Serious: Yes (Hospitalization)
  Sender: FDA-Public Use
  Company Number: US-WATSON-2011-16849

PATIENT
  Age: 47 Year
  Sex: Female

DRUGS (2)
  1. NORETHINDRON ACETAE/ETHINYL ESTRADIOL [Suspect]
     Indication: ORAL CONTRACEPTION
     Dosage: 0.5MG NORETHINDRONE/0.035MG EE
  2. CLOZAPINE [Suspect]
     Indication: SCHIZOPHRENIA, PARANOID TYPE
     Dosage: UNKNOWN

REACTIONS (5)
  - SOMNOLENCE [None]
  - ASTHENIA [None]
  - DRUG INTERACTION [None]
  - DRUG LEVEL INCREASED [None]
  - DIZZINESS [None]
